FAERS Safety Report 4444079-X (Version None)
Quarter: 2004Q3

REPORT INFORMATION
  Report Type: 
  Country: None (occurrence: None)
  Receive Date: 20040729
  Receipt Date: 20040511
  Transmission Date: 20050211
  Serious: Yes (Hospitalization, Other)
  Sender: FDA-Public Use
  Company Number: US-JNJFOC-20040203248

PATIENT
  Age: 52 Year
  Sex: Male
  Weight: 97.5234 kg

DRUGS (4)
  1. RISPERDAL [Suspect]
     Indication: PSYCHOTIC DISORDER
     Dosage: 4 MG, 1 IN 1 DAY, ORAL
     Route: 048
  2. ZYPREXA [Concomitant]
  3. XANAX [Concomitant]
  4. ZOLOFT [Concomitant]

REACTIONS (1)
  - CEREBROVASCULAR ACCIDENT [None]
